FAERS Safety Report 10589304 (Version 1)
Quarter: 2014Q4

REPORT INFORMATION
  Report Type: Spontaneous
  Country: FR (occurrence: FR)
  Receive Date: 20141118
  Receipt Date: 20141118
  Transmission Date: 20150529
  Serious: Yes (Other)
  Sender: FDA-Public Use
  Company Number: FR-AMGEN-FRASP2014089134

PATIENT
  Age: 64 Year
  Sex: Male

DRUGS (3)
  1. FLUOROURACILE WINTHROP [Concomitant]
     Active Substance: FLUOROURACIL
     Dosage: UNK
     Route: 042
     Dates: start: 20131009, end: 20131219
  2. VECTIBIX [Suspect]
     Active Substance: PANITUMUMAB
     Indication: PRODUCT USED FOR UNKNOWN INDICATION
     Dosage: 445 MG/CURE(445 MG / 1 CYCLE)
     Route: 042
     Dates: start: 20131009, end: 20131218
  3. OXALIPLATINE ACCORD [Concomitant]
     Active Substance: OXALIPLATIN
     Dosage: 123 MG, PER CURE (123 MG, 1 CYCLE)
     Route: 042
     Dates: start: 20131009, end: 20131218

REACTIONS (4)
  - Folliculitis [Recovering/Resolving]
  - Pruritus [Recovering/Resolving]
  - Skin toxicity [Recovering/Resolving]
  - Xerosis [Recovering/Resolving]

NARRATIVE: CASE EVENT DATE: 201310
